FAERS Safety Report 22164023 (Version 1)
Quarter: 2023Q2

REPORT INFORMATION
  Report Type: Spontaneous
  Country: RU (occurrence: RU)
  Receive Date: 20230402
  Receipt Date: 20230402
  Transmission Date: 20230722
  Serious: Yes (Other)
  Sender: FDA-Public Use
  Company Number: RU-002147023-NVSC2023RU073984

PATIENT
  Age: 10 Year
  Sex: Female

DRUGS (1)
  1. EVEROLIMUS [Suspect]
     Active Substance: EVEROLIMUS
     Indication: Angiocentric lymphoma
     Dosage: UNK
     Route: 065

REACTIONS (5)
  - Angiocentric lymphoma [Unknown]
  - Malignant neoplasm progression [Unknown]
  - Remission not achieved [Unknown]
  - Product use in unapproved indication [Unknown]
  - Product use issue [Unknown]
